FAERS Safety Report 10129549 (Version 1)
Quarter: 2014Q2

REPORT INFORMATION
  Report Type: Spontaneous
  Country: US (occurrence: None)
  Receive Date: 20140421
  Receipt Date: 20140421
  Transmission Date: 20141212
  Serious: No
  Sender: FDA-Public Use
  Company Number: AEGR000325

PATIENT
  Age: 65 Year
  Sex: Female
  Weight: 62.1 kg

DRUGS (8)
  1. JUXTAPID (LOMITAPIDE) CAPSULE, 10MG [Suspect]
     Indication: TYPE IIA HYPERLIPIDAEMIA
     Route: 048
     Dates: start: 201311, end: 20140222
  2. SYNTHROID (LEVOTHYROXINE SODIUM) [Concomitant]
  3. ASA (ACETYLSALICYLIC ACID) [Concomitant]
  4. COENZYME Q10 (UBIDECARENONE) [Concomitant]
  5. ESTER C (CALCIUM ASCORBATE) [Concomitant]
  6. GLUCOSAMINE (GLUCOSAMINE SULFATE) [Concomitant]
  7. VITAMIN D (COLECALCIFEROL) [Concomitant]
  8. VYTORIN (EZETIMIBE, SIMVASTATIN) [Concomitant]

REACTIONS (6)
  - Chills [None]
  - Gastroenteritis viral [None]
  - Pyrexia [None]
  - Vomiting [None]
  - Nausea [None]
  - Fatigue [None]
